FAERS Safety Report 5972298 (Version 3)
Quarter: 2013Q2

REPORT INFORMATION
  Report Type: Spontaneous
  Country: US (occurrence: US)
  Receive Date: 20060130
  Receipt Date: 20130407
  Transmission Date: 20140414
  Serious: Yes (Hospitalization)
  Sender: FDA-Public Use
  Company Number: US-BRISTOL-MYERS SQUIBB COMPANY-12980488

PATIENT
  Age: 63 Year
  Sex: Male
  Weight: 90.7 kg

DRUGS (8)
  1. GLUCOPHAGE [Suspect]
     Indication: DIABETES MELLITUS
     Dosage: 1 DF = 1000MG IN THE MORNING AND AT NIGHT
     Dates: start: 1990
  2. GLUCOPHAGE [Suspect]
     Indication: DIABETES MELLITUS
     Dosage: 1 DF:2 TAB
  3. ACCUPRIL [Concomitant]
     Indication: HYPERTENSION
  4. LIPITOR [Concomitant]
     Indication: BLOOD CHOLESTEROL INCREASED
  5. NIASPAN [Concomitant]
  6. SURFAK STOOL SOFTENER [Concomitant]
  7. VITAMINS WITH MINERALS [Concomitant]
  8. NORVASC [Concomitant]
     Indication: HYPERTENSION

REACTIONS (4)
  - Myocardial infarction [Unknown]
  - Erythema [Unknown]
  - Drug ineffective [Unknown]
  - Drug dose omission [None]
